FAERS Safety Report 6545876-7 (Version None)
Quarter: 2010Q1

REPORT INFORMATION
  Report Type: 
  Country: None (occurrence: None)
  Receive Date: 20100121
  Receipt Date: 20091001
  Transmission Date: 20100710
  Serious: No
  Sender: FDA-Public Use
  Company Number: US-ALLERGAN-0913541US

PATIENT
  Age: 15 Year
  Sex: Female

DRUGS (1)
  1. TAZORAC [Suspect]
     Indication: ACNE
     Dosage: UNK
     Route: 061
     Dates: start: 20090927, end: 20090927

REACTIONS (2)
  - ERYTHEMA [None]
  - SWELLING FACE [None]
